FAERS Safety Report 20853664 (Version 5)
Quarter: 2022Q3

REPORT INFORMATION
  Report Type: Spontaneous
  Country: US (occurrence: US)
  Receive Date: 20220520
  Receipt Date: 20220923
  Transmission Date: 20221027
  Serious: No
  Sender: FDA-Public Use
  Company Number: US-BRISTOL-MYERS SQUIBB COMPANY-2022-043727

PATIENT
  Age: 70 Year
  Sex: Female

DRUGS (3)
  1. REVLIMID [Suspect]
     Active Substance: LENALIDOMIDE
     Indication: Plasma cell myeloma
     Dosage: TAKE 1 CAPSULE BY MOUTH EVERYDAY FOR 21 DAYS THEN OFF FOR 7 DAYS  EVERY 28 DAY CYCLE
     Route: 048
     Dates: start: 20211201
  2. REVLIMID [Suspect]
     Active Substance: LENALIDOMIDE
     Dosage: FREQ - TAKE 1 CAPSULE BY MOUTH EVERY DAY FOR 21 DAYS THEN OFF FOR 7 DAYS
     Route: 048
  3. REVLIMID [Suspect]
     Active Substance: LENALIDOMIDE
     Dosage: FREQ - TAKE 1 CAPSULE BY MOUTH EVERY DAY FOR 21 DAYS THEN OFF FOR 7 DAYS EVERY 28 DAY CYCLE
     Route: 048
     Dates: start: 20210112

REACTIONS (4)
  - Muscle spasms [Unknown]
  - Muscle spasms [Unknown]
  - Product dose omission issue [Unknown]
  - Seasonal allergy [Unknown]
